FAERS Safety Report 11884843 (Version 4)
Quarter: 2016Q1

REPORT INFORMATION
  Report Type: Report from Study
  Country: US (occurrence: US)
  Receive Date: 20160104
  Receipt Date: 20160121
  Transmission Date: 20160526
  Serious: No
  Sender: FDA-Public Use
  Company Number: US-AMGEN-USASL2015138273

PATIENT
  Age: 35 Year
  Sex: Female

DRUGS (2)
  1. ENBREL [Suspect]
     Active Substance: ETANERCEPT
     Indication: RHEUMATOID ARTHRITIS
     Dosage: 50MG WEEKLY
     Route: 065
     Dates: start: 20151221, end: 20160115
  2. TRAMADOL. [Suspect]
     Active Substance: TRAMADOL
     Indication: PRODUCT USED FOR UNKNOWN INDICATION
     Dosage: UNK
     Route: 065
     Dates: end: 20160101

REACTIONS (25)
  - Abdominal pain upper [Unknown]
  - Neck pain [Unknown]
  - Injection site induration [Recovering/Resolving]
  - Injection site bruising [Not Recovered/Not Resolved]
  - Injection site mass [Recovering/Resolving]
  - Head discomfort [Unknown]
  - Injection site pruritus [Unknown]
  - Panic attack [Unknown]
  - Injection site reaction [Recovering/Resolving]
  - Diarrhoea [Unknown]
  - Pain in jaw [Unknown]
  - Nausea [Unknown]
  - Insomnia [Unknown]
  - Heart rate increased [Unknown]
  - Ear infection [Unknown]
  - Fatigue [Recovered/Resolved]
  - Dizziness [Unknown]
  - Headache [Unknown]
  - Sneezing [Unknown]
  - Drug dose omission [Unknown]
  - Injection site erythema [Not Recovered/Not Resolved]
  - Injection site warmth [Recovering/Resolving]
  - Joint swelling [Unknown]
  - Injection site swelling [Unknown]
  - Nasopharyngitis [Unknown]

NARRATIVE: CASE EVENT DATE: 201512
